FAERS Safety Report 7757630-9 (Version None)
Quarter: 2011Q3

REPORT INFORMATION
  Report Type: 
  Country: None (occurrence: None)
  Receive Date: 20110916
  Receipt Date: 20110902
  Transmission Date: 20111222
  Serious: Yes (Other)
  Sender: FDA-Public Use
  Company Number: PHHY2011AR78820

PATIENT
  Sex: Female

DRUGS (3)
  1. DIOVAN [Suspect]
     Indication: HYPERTENSION
     Dosage: 160 MG, DAILY
  2. ANTIBIOTICS [Concomitant]
     Dosage: UNK UKN, UNK
  3. ANTIDIABETIC [Concomitant]
     Dosage: UNK UKN, UNK

REACTIONS (2)
  - GAIT DISTURBANCE [None]
  - LOCALISED INFECTION [None]
